FAERS Safety Report 5891571-7 (Version None)
Quarter: 2008Q3

REPORT INFORMATION
  Report Type: 
  Country: None (occurrence: None)
  Receive Date: 20080918
  Receipt Date: 20080903
  Transmission Date: 20090109
  Serious: Yes (Other)
  Sender: FDA-Public Use
  Company Number: 2008002195

PATIENT
  Age: 36 Year
  Sex: Female
  Weight: 55 kg

DRUGS (3)
  1. ERLOTINIB (ERLOTINIB) (TABLET) (ERLOTINIB) [Suspect]
     Indication: LUNG ADENOCARCINOMA
     Dosage: (150 MG, QD), ORAL
     Route: 048
     Dates: start: 20080619, end: 20080820
  2. MECOBALAMIN (MECOBALAMIN) [Concomitant]
  3. POSTERISAN (POSTERISAN) [Concomitant]

REACTIONS (13)
  - CHEST PAIN [None]
  - DERMATITIS ACNEIFORM [None]
  - DIARRHOEA [None]
  - DRY SKIN [None]
  - KERATITIS [None]
  - MENSTRUATION IRREGULAR [None]
  - PAIN [None]
  - PHOTOSENSITIVITY REACTION [None]
  - PRURITUS [None]
  - SKIN IRRITATION [None]
  - SKIN REACTION [None]
  - VAGINAL INFLAMMATION [None]
  - VISUAL BRIGHTNESS [None]
